FAERS Safety Report 6046697-4 (Version None)
Quarter: 2009Q1

REPORT INFORMATION
  Report Type: 
  Country: None (occurrence: None)
  Receive Date: 20090122
  Receipt Date: 20090110
  Transmission Date: 20090719
  Serious: Yes (Other)
  Sender: FDA-Public Use
  Company Number: US-PFIZER INC-2008095345

PATIENT
  Sex: Female
  Weight: 47 kg

DRUGS (2)
  1. AZITHROMYCIN [Suspect]
     Indication: URINARY TRACT INFECTION
     Dates: start: 20081108
  2. DRUG, UNSPECIFIED [Suspect]

REACTIONS (11)
  - DRUG HYPERSENSITIVITY [None]
  - DRUG INEFFECTIVE [None]
  - DYSGEUSIA [None]
  - DYSPHAGIA [None]
  - FEELING ABNORMAL [None]
  - HEARING IMPAIRED [None]
  - PERIPHERAL VASCULAR DISORDER [None]
  - PRODUCT QUALITY ISSUE [None]
  - URINARY TRACT INFECTION [None]
  - VISUAL IMPAIRMENT [None]
  - WEIGHT DECREASED [None]
